FAERS Safety Report 5459379-4 (Version None)
Quarter: 2007Q3

REPORT INFORMATION
  Report Type: 
  Country: None (occurrence: None)
  Receive Date: 20070919
  Receipt Date: 20070912
  Transmission Date: 20080115
  Serious: Yes (Hospitalization, Other)
  Sender: FDA-Public Use
  Company Number: JP-AVENTIS-200712234JP

PATIENT
  Age: 1 Year
  Sex: Female
  Weight: 7.6 kg

DRUGS (2)
  1. LASIX [Suspect]
  2. HERBAL TEAL [Concomitant]

REACTIONS (1)
  - PSEUDO-BARTTER SYNDROME [None]
